FAERS Safety Report 12675621 (Version 1)
Quarter: 2016Q3

REPORT INFORMATION
  Report Type: Spontaneous
  Country: US (occurrence: US)
  Receive Date: 20160823
  Receipt Date: 20160823
  Transmission Date: 20161109
  Serious: No
  Sender: FDA-Public Use
  Company Number: US-JAZZ-2016-US-006348

PATIENT
  Sex: Female

DRUGS (32)
  1. XYREM [Suspect]
     Active Substance: SODIUM OXYBATE
     Indication: NARCOLEPSY
     Dosage: 3 G, BID
     Route: 048
     Dates: start: 201309, end: 201310
  2. DEXAMETHASONE. [Concomitant]
     Active Substance: DEXAMETHASONE
  3. PRILOSEC [Concomitant]
     Active Substance: OMEPRAZOLE MAGNESIUM
  4. NUVIGIL [Concomitant]
     Active Substance: ARMODAFINIL
  5. VITAMIN D [Concomitant]
     Active Substance: CHOLECALCIFEROL
  6. ADDERALL [Concomitant]
     Active Substance: AMPHETAMINE ASPARTATE\AMPHETAMINE SULFATE\DEXTROAMPHETAMINE SACCHARATE\DEXTROAMPHETAMINE SULFATE
  7. PILOCARPINE HCL [Concomitant]
     Active Substance: PILOCARPINE HYDROCHLORIDE
  8. SUFENTANIL [Concomitant]
     Active Substance: SUFENTANIL
  9. AMPYRA [Concomitant]
     Active Substance: DALFAMPRIDINE
  10. ALEVE [Concomitant]
     Active Substance: NAPROXEN SODIUM
  11. DIPHENHYDRAMINE. [Concomitant]
     Active Substance: DIPHENHYDRAMINE
  12. ESTRADIOL. [Concomitant]
     Active Substance: ESTRADIOL
  13. PERCOCET [Concomitant]
     Active Substance: ACETAMINOPHEN\OXYCODONE HYDROCHLORIDE
  14. AMITIZA [Concomitant]
     Active Substance: LUBIPROSTONE
  15. BUPIVACAINE HCL [Concomitant]
     Active Substance: BUPIVACAINE HYDROCHLORIDE
  16. OXYBUTYNIN [Concomitant]
     Active Substance: OXYBUTYNIN
  17. TYSABRI [Concomitant]
     Active Substance: NATALIZUMAB
  18. CARAFATE [Concomitant]
     Active Substance: SUCRALFATE
  19. PROVIGIL [Concomitant]
     Active Substance: MODAFINIL
  20. NEURONTIN [Concomitant]
     Active Substance: GABAPENTIN
  21. TOPAMAX [Concomitant]
     Active Substance: TOPIRAMATE
  22. VITAMIN E [Concomitant]
     Active Substance: .ALPHA.-TOCOPHEROL
  23. XYREM [Suspect]
     Active Substance: SODIUM OXYBATE
     Indication: CATAPLEXY
     Dosage: 4.25 G, BID
     Route: 048
     Dates: start: 201310
  24. TIZANIDINE HCL [Concomitant]
     Active Substance: TIZANIDINE HYDROCHLORIDE
  25. CHANTIX [Concomitant]
     Active Substance: VARENICLINE TARTRATE
  26. BETASERON [Concomitant]
     Active Substance: INTERFERON BETA-1B
  27. KLONOPIN [Concomitant]
     Active Substance: CLONAZEPAM
  28. PREDNISONE. [Concomitant]
     Active Substance: PREDNISONE
  29. LORTAB [Concomitant]
     Active Substance: ACETAMINOPHEN\HYDROCODONE BITARTRATE
  30. BACLOFEN. [Concomitant]
     Active Substance: BACLOFEN
  31. PROBIOTIC COMPLEX [Concomitant]
  32. VITAMIN C [Concomitant]
     Active Substance: ASCORBIC ACID

REACTIONS (2)
  - Osteoarthritis [Not Recovered/Not Resolved]
  - Osteoporosis [Not Recovered/Not Resolved]

NARRATIVE: CASE EVENT DATE: 2015
